FAERS Safety Report 14241150 (Version 1)
Quarter: 2017Q4

REPORT INFORMATION
  Report Type: Spontaneous
  Country: US (occurrence: US)
  Receive Date: 20171130
  Receipt Date: 20171130
  Transmission Date: 20180321
  Serious: Yes (Other)
  Sender: FDA-Public Use
  Company Number: US-ABBVIE-17P-163-2178864-00

PATIENT
  Age: 71 Year
  Sex: Male

DRUGS (4)
  1. VENETOCLAX. [Suspect]
     Active Substance: VENETOCLAX
     Indication: MANTLE CELL LYMPHOMA
     Dosage: INITIAL DOSING AT 0807
     Route: 048
     Dates: start: 20171021, end: 20171021
  2. VENETOCLAX. [Suspect]
     Active Substance: VENETOCLAX
     Route: 048
     Dates: start: 20171023
  3. VENETOCLAX. [Suspect]
     Active Substance: VENETOCLAX
     Route: 048
  4. VENETOCLAX. [Suspect]
     Active Substance: VENETOCLAX
     Route: 048

REACTIONS (9)
  - Sinus tachycardia [Unknown]
  - Dyspnoea [Unknown]
  - Tumour lysis syndrome [Recovered/Resolved]
  - Transfusion reaction [Unknown]
  - Chills [Unknown]
  - Wheezing [Unknown]
  - Discomfort [Unknown]
  - Bundle branch block right [Unknown]
  - Suspected product contamination [Unknown]

NARRATIVE: CASE EVENT DATE: 20171021
